FAERS Safety Report 13314221 (Version 1)
Quarter: 2017Q1

REPORT INFORMATION
  Report Type: Spontaneous
  Country: US (occurrence: US)
  Receive Date: 20170309
  Receipt Date: 20170309
  Transmission Date: 20170428
  Serious: No
  Sender: FDA-Public Use
  Company Number: GXBR2016US003294

PATIENT
  Sex: Female
  Weight: 104.31 kg

DRUGS (2)
  1. LISINOPRIL TABLETS, USP [Suspect]
     Active Substance: LISINOPRIL
     Indication: HYPERTENSION
     Dosage: 10 MG, UNK
     Route: 048
  2. MULTI VIT [Concomitant]
     Dosage: UNK DF, UNK

REACTIONS (16)
  - Onychoclasis [Not Recovered/Not Resolved]
  - Depressed mood [Not Recovered/Not Resolved]
  - Fall [Unknown]
  - Contusion [Not Recovered/Not Resolved]
  - Fatigue [Not Recovered/Not Resolved]
  - Headache [Not Recovered/Not Resolved]
  - Pain [Not Recovered/Not Resolved]
  - Body height decreased [Not Recovered/Not Resolved]
  - Abdominal distension [Not Recovered/Not Resolved]
  - Dark circles under eyes [Not Recovered/Not Resolved]
  - Feeling abnormal [Not Recovered/Not Resolved]
  - Osteoporosis [Not Recovered/Not Resolved]
  - Muscle spasms [Not Recovered/Not Resolved]
  - Myalgia [Not Recovered/Not Resolved]
  - Dizziness [Not Recovered/Not Resolved]
  - Alopecia [Not Recovered/Not Resolved]
